FAERS Safety Report 9154064 (Version 1)
Quarter: 2013Q1

REPORT INFORMATION
  Report Type: Spontaneous
  Country: PR (occurrence: US)
  Receive Date: 20130311
  Receipt Date: 20130311
  Transmission Date: 20140127
  Serious: No
  Sender: FDA-Public Use
  Company Number: PR-PFIZER INC-2013078686

PATIENT
  Age: 20 Year
  Sex: Female

DRUGS (1)
  1. SUTENT [Suspect]
     Indication: EPITHELIOID SARCOMA
     Dosage: 50 MG, 1X/DAY

REACTIONS (3)
  - Disease progression [Unknown]
  - Epithelioid sarcoma [Unknown]
  - Off label use [Unknown]
